FAERS Safety Report 7067323-1 (Version None)
Quarter: 2010Q4

REPORT INFORMATION
  Report Type: 
  Country: None (occurrence: None)
  Receive Date: 20101028
  Receipt Date: 20100412
  Transmission Date: 20110411
  Serious: Yes (Death)
  Sender: FDA-Public Use
  Company Number: US-ASTRAZENECA-2009SE15072

PATIENT
  Age: 8862 Day
  Sex: Male
  Weight: 134.3 kg

DRUGS (6)
  1. SEROQUEL [Suspect]
     Route: 048
     Dates: start: 20030117
  2. EFFEXOR XR [Concomitant]
     Dosage: 75 MG 3 QHS
     Route: 048
     Dates: start: 20030117
  3. ZYPREXA [Concomitant]
     Route: 048
     Dates: start: 20030117
  4. WELLBUTRIN [Concomitant]
     Dates: start: 20030916
  5. RISPERDAL [Concomitant]
     Dosage: 1-3 MG
     Dates: start: 20010801
  6. ATIVAN [Concomitant]
     Dates: start: 20010801

REACTIONS (3)
  - DIABETES MELLITUS [None]
  - MULTIPLE INJURIES [None]
  - ROAD TRAFFIC ACCIDENT [None]
